FAERS Safety Report 4734607-9 (Version None)
Quarter: 2005Q3

REPORT INFORMATION
  Report Type: 
  Country: None (occurrence: None)
  Receive Date: 20050729
  Receipt Date: 20050527
  Transmission Date: 20060218
  Serious: Yes (Other)
  Sender: FDA-Public Use
  Company Number: 2005081295

PATIENT
  Age: 46 Year
  Sex: Male
  Weight: 117.028 kg

DRUGS (2)
  1. VIAGRA [Suspect]
     Indication: ERECTILE DYSFUNCTION
     Dosage: ORAL
     Route: 048
     Dates: start: 20030101, end: 20050527
  2. INSULIN [Concomitant]

REACTIONS (3)
  - BLINDNESS [None]
  - INTRAOCULAR PRESSURE TEST ABNORMAL [None]
  - VISUAL ACUITY REDUCED [None]
